FAERS Safety Report 8267568-9 (Version None)
Quarter: 2012Q2

REPORT INFORMATION
  Report Type: 
  Country: None (occurrence: None)
  Receive Date: 20120409
  Receipt Date: 20120403
  Transmission Date: 20120825
  Serious: Yes (Hospitalization)
  Sender: FDA-Public Use
  Company Number: PHHY2012BR028004

PATIENT
  Sex: Female

DRUGS (1)
  1. PARLODEL [Suspect]
     Indication: SUPPRESSED LACTATION
     Dosage: 1 DF, QD
     Route: 048
     Dates: start: 20120327, end: 20120327

REACTIONS (4)
  - BLOOD PRESSURE DECREASED [None]
  - NONSPECIFIC REACTION [None]
  - VOMITING [None]
  - PALLOR [None]
